FAERS Safety Report 5405410-1 (Version None)
Quarter: 2007Q3

REPORT INFORMATION
  Report Type: 
  Country: None (occurrence: None)
  Receive Date: 20070803
  Receipt Date: 20070730
  Transmission Date: 20080115
  Serious: Yes (Hospitalization)
  Sender: FDA-Public Use
  Company Number: DE-BOEHRINGER INGELHEIM PHARMACEUTICALS, INC.-2007-DE-04489DE

PATIENT
  Sex: Male
  Weight: 75 kg

DRUGS (6)
  1. SIFROL [Suspect]
     Indication: CENTRAL PONTINE MYELINOLYSIS
     Route: 048
  2. SIFROL [Suspect]
     Indication: BARTTER'S SYNDROME
  3. TEGRETOL [Concomitant]
     Indication: PAIN
  4. DOXEPIN HCL [Concomitant]
     Indication: PAIN
  5. DOXEPIN HCL [Concomitant]
     Indication: DEPRESSION
  6. SULPIRIL [Concomitant]

REACTIONS (1)
  - CARDIOVASCULAR INSUFFICIENCY [None]
